FAERS Safety Report 11336124 (Version 1)
Quarter: 2015Q3

REPORT INFORMATION
  Report Type: Spontaneous
  Country: TR (occurrence: TR)
  Receive Date: 20150804
  Receipt Date: 20150804
  Transmission Date: 20151125
  Serious: Yes (Other)
  Sender: FDA-Public Use
  Company Number: TR-SA-2015SA096859

PATIENT
  Age: 23 Year
  Sex: Female

DRUGS (3)
  1. COLCHICINE. [Concomitant]
     Active Substance: COLCHICINE
     Indication: FAMILIAL MEDITERRANEAN FEVER
     Route: 065
  2. BCG FOR IMMUNOTHERAPY [Suspect]
     Active Substance: BACILLUS CALMETTE-GUERIN ANTIGEN, UNSPECIFIED SUBSTRAIN
     Indication: CYSTITIS GLANDULARIS
     Route: 043
  3. MITOMYCIN. [Concomitant]
     Active Substance: MITOMYCIN
     Indication: BLADDER CANCER
     Route: 043

REACTIONS (1)
  - Treatment failure [Unknown]
